FAERS Safety Report 21316023 (Version 5)
Quarter: 2023Q1

REPORT INFORMATION
  Report Type: Report from Study
  Country: US (occurrence: US)
  Receive Date: 20220910
  Receipt Date: 20230107
  Transmission Date: 20230418
  Serious: Yes (Other)
  Sender: FDA-Public Use
  Company Number: US-NOVARTISPH-NVSC2022US202103

PATIENT
  Sex: Female

DRUGS (2)
  1. COSENTYX [Suspect]
     Active Substance: SECUKINUMAB
     Indication: Ankylosing spondylitis
     Dosage: 150 MG, QW (EVERY WEEK FOR 5 WEEKS)
     Route: 058
     Dates: start: 20220728
  2. COSENTYX [Suspect]
     Active Substance: SECUKINUMAB
     Dosage: 150 MG, (EVERY 4 WEEKS)(1ST MAINTENANCE DOSE)
     Route: 058
     Dates: start: 20220924

REACTIONS (4)
  - Blood pressure increased [Unknown]
  - Stress [Unknown]
  - Mobility decreased [Recovering/Resolving]
  - Drug ineffective [Unknown]
